FAERS Safety Report 7311717-3 (Version None)
Quarter: 2011Q1

REPORT INFORMATION
  Report Type: 
  Country: None (occurrence: None)
  Receive Date: 20110224
  Receipt Date: 20110118
  Transmission Date: 20110831
  Serious: Yes (Death, Hospitalization, Other)
  Sender: FDA-Public Use
  Company Number: PHHO2011US01770

PATIENT
  Sex: Female
  Weight: 66 kg

DRUGS (12)
  1. AFINITOR [Suspect]
     Indication: BREAST CANCER
     Dosage: 10 MG DAILY
     Route: 048
     Dates: start: 20101117, end: 20110105
  2. K-DUR [Concomitant]
  3. ALLEGRA [Concomitant]
  4. ZOFRAN [Concomitant]
  5. ALTACE [Concomitant]
  6. PYRIDOXINE [Concomitant]
  7. VALTREX [Concomitant]
  8. BENADRYL [Concomitant]
  9. ZANTAC [Concomitant]
  10. ATIVAN [Concomitant]
  11. COMPAZINE [Concomitant]
  12. COUMADIN [Concomitant]

REACTIONS (7)
  - CONCOMITANT DISEASE PROGRESSION [None]
  - COUGH [None]
  - PULMONARY EMBOLISM [None]
  - PULMONARY FIBROSIS [None]
  - PYREXIA [None]
  - DYSPNOEA [None]
  - RESPIRATORY FAILURE [None]
